FAERS Safety Report 6061692-7 (Version None)
Quarter: 2009Q1

REPORT INFORMATION
  Report Type: 
  Country: None (occurrence: None)
  Receive Date: 20090202
  Receipt Date: 20090121
  Transmission Date: 20090719
  Serious: Yes (Other)
  Sender: FDA-Public Use
  Company Number: US-PFIZER INC-2009159476

PATIENT
  Sex: Female
  Weight: 111 kg

DRUGS (14)
  1. LYRICA [Suspect]
     Indication: FIBROMYALGIA
     Dosage: 50 MG, 3X/DAY
     Dates: start: 20081118
  2. LISINOPRIL [Concomitant]
     Indication: HYPERTENSION
     Dosage: 40 MG, UNK
  3. THYROID TAB [Concomitant]
     Indication: HYPOTHYROIDISM
     Dosage: UNK
  4. CYMBALTA [Concomitant]
     Indication: DEPRESSION
     Dosage: UNK
  5. NEXIUM [Concomitant]
     Indication: GASTROOESOPHAGEAL REFLUX DISEASE
     Dosage: 40 MG, 1X/DAY
  6. METFORMIN HYDROCHLORIDE/SITAGLIPTIN [Concomitant]
     Indication: TYPE 2 DIABETES MELLITUS
     Dosage: 500 MG, 2X/DAY
  7. ALL OTHER THERAPEUTIC PRODUCTS [Concomitant]
     Indication: TYPE 2 DIABETES MELLITUS
     Dosage: UNK
  8. KLONOPIN [Concomitant]
     Dosage: UNK
  9. REQUIP [Concomitant]
     Indication: RESTLESS LEGS SYNDROME
     Dosage: UNK
  10. ROZEREM [Concomitant]
     Indication: INSOMNIA
     Dosage: 8 MG, 1X/DAY
  11. COUMADIN [Concomitant]
     Indication: PULMONARY EMBOLISM
     Dosage: UNK
  12. CALCIUM [Concomitant]
     Dosage: UNK
  13. MAGNESIUM SULFATE [Concomitant]
     Dosage: UNK
  14. ZINC [Concomitant]
     Dosage: UNK

REACTIONS (7)
  - ALOPECIA [None]
  - BRONCHITIS [None]
  - HAEMOPTYSIS [None]
  - ILL-DEFINED DISORDER [None]
  - LARYNGITIS [None]
  - LIP SWELLING [None]
  - SWOLLEN TONGUE [None]
